FAERS Safety Report 5443208-9 (Version None)
Quarter: 2007Q3

REPORT INFORMATION
  Report Type: 
  Country: None (occurrence: None)
  Receive Date: 20070905
  Receipt Date: 20070828
  Transmission Date: 20080115
  Serious: Yes (Hospitalization)
  Sender: FDA-Public Use
  Company Number: AT-AVENTIS-200717868GDDC

PATIENT
  Age: 63 Year
  Sex: Female

DRUGS (3)
  1. DOCETAXEL [Suspect]
     Route: 042
     Dates: start: 20070329, end: 20070419
  2. CISPLATIN [Suspect]
     Route: 042
     Dates: start: 20070329, end: 20070420
  3. CETUXIMAB [Suspect]
     Route: 042
     Dates: start: 20070329, end: 20070426

REACTIONS (5)
  - ELECTROLYTE IMBALANCE [None]
  - HYPOCALCAEMIA [None]
  - HYPOKALAEMIA [None]
  - HYPOMAGNESAEMIA [None]
  - VOMITING [None]
